FAERS Safety Report 21951630 (Version 1)
Quarter: 2023Q1

REPORT INFORMATION
  Report Type: Spontaneous
  Country: US (occurrence: US)
  Receive Date: 20230203
  Receipt Date: 20230203
  Transmission Date: 20230418
  Serious: No
  Sender: FDA-Public Use
  Company Number: US-MIC-a0P5b00000UQEUgEAP

PATIENT
  Sex: Female
  Weight: 73 kg

DRUGS (4)
  1. MOTEGRITY [Suspect]
     Active Substance: PRUCALOPRIDE SUCCINATE
     Indication: Irritable bowel syndrome
     Dosage: 2 MILLIGRAM, QD
     Route: 065
  2. MOTEGRITY [Suspect]
     Active Substance: PRUCALOPRIDE SUCCINATE
     Indication: Constipation
  3. MIRALAX [Concomitant]
     Active Substance: POLYETHYLENE GLYCOL 3350
  4. LACTULOSE [Concomitant]
     Active Substance: LACTULOSE

REACTIONS (2)
  - Malaise [Unknown]
  - Product use issue [Unknown]
